FAERS Safety Report 6270748-5 (Version None)
Quarter: 2009Q3

REPORT INFORMATION
  Report Type: 
  Country: None (occurrence: None)
  Receive Date: 20090716
  Receipt Date: 20090714
  Transmission Date: 20100115
  Serious: Yes (Death)
  Sender: FDA-Public Use
  Company Number: US-PURDUE-USA-2009-0038677

PATIENT
  Sex: Female

DRUGS (2)
  1. OXYCONTIN [Suspect]
     Indication: LUNG CANCER METASTATIC
     Dosage: 10 MG, BID
     Route: 048
     Dates: start: 20081119, end: 20090218
  2. OXYIR CAPSULES 5 MG [Suspect]
     Indication: DRUG USE FOR UNKNOWN INDICATION
     Dosage: 5 MG, BID
     Route: 048

REACTIONS (1)
  - DEATH [None]
